FAERS Safety Report 24254793 (Version 1)
Quarter: 2024Q3

REPORT INFORMATION
  Report Type: Spontaneous
  Country: US (occurrence: US)
  Receive Date: 20240827
  Receipt Date: 20240827
  Transmission Date: 20241016
  Serious: Yes (Other)
  Sender: NEUROCRINE BIOSCIENCES
  Company Number: US-NEUROCRINE BIOSCIENCES INC.-2024NBI08253

PATIENT
  Age: 63 Year
  Sex: Female

DRUGS (2)
  1. INGREZZA [Suspect]
     Active Substance: VALBENAZINE
     Indication: Tardive dyskinesia
     Dosage: UNK
     Route: 065
     Dates: start: 202406
  2. INGREZZA [Suspect]
     Active Substance: VALBENAZINE
     Dosage: UNKNOWN IF 60MG OR 80MG
     Route: 065

REACTIONS (2)
  - Unresponsive to stimuli [Unknown]
  - Tardive dyskinesia [Unknown]
